FAERS Safety Report 9376287 (Version 1)
Quarter: 2013Q3

REPORT INFORMATION
  Report Type: Spontaneous
  Country: NL (occurrence: NL)
  Receive Date: 20130701
  Receipt Date: 20130701
  Transmission Date: 20140515
  Serious: Yes (Other)
  Sender: FDA-Public Use
  Company Number: PHHY2013NL065804

PATIENT
  Age: 32 Year
  Sex: Male

DRUGS (2)
  1. TRIAMCINOLONE [Suspect]
     Indication: ARTHRALGIA
     Dosage: 1 DF, QW3 (THREE TIMES A WEEK OVER THE LAST 6 WEEKS IN HIS RIGHT ACROMIOCLAVICULAR JOINT)
     Route: 042
  2. RITONAVIR [Interacting]
     Indication: HIV INFECTION
     Dosage: 100 MG, DAILY
     Route: 048

REACTIONS (11)
  - Toxicity to various agents [Recovered/Resolved]
  - Pulmonary embolism [Recovered/Resolved]
  - Hypogonadism [Recovered/Resolved]
  - Cushing^s syndrome [Recovered/Resolved]
  - Fatigue [Recovered/Resolved]
  - Cushingoid [Recovered/Resolved]
  - Irritability [Recovered/Resolved]
  - Swelling [Recovered/Resolved]
  - Weight increased [Recovered/Resolved]
  - Blood pressure increased [Recovered/Resolved]
  - Drug interaction [Unknown]
